FAERS Safety Report 4288112-7 (Version None)
Quarter: 2004Q1

REPORT INFORMATION
  Report Type: 
  Country: None (occurrence: None)
  Receive Date: 20040209
  Receipt Date: 20030816
  Transmission Date: 20041129
  Serious: No
  Sender: FDA-Public Use
  Company Number: US-GLAXOSMITHKLINE-A0422475A

PATIENT

DRUGS (2)
  1. PAXIL [Suspect]
     Indication: ANXIETY
     Dates: start: 20030501
  2. ALCOHOL [Suspect]
     Route: 048
     Dates: start: 20030801, end: 20030801

REACTIONS (7)
  - ABNORMAL BEHAVIOUR [None]
  - AGGRESSION [None]
  - ANGER [None]
  - ANXIETY [None]
  - DRUG INTERACTION [None]
  - MOOD SWINGS [None]
  - VERBAL ABUSE [None]
